FAERS Safety Report 6033865-0 (Version None)
Quarter: 2009Q1

REPORT INFORMATION
  Report Type: 
  Country: None (occurrence: None)
  Receive Date: 20090112
  Receipt Date: 20090106
  Transmission Date: 20090719
  Serious: Yes (Life-Threatening, Other)
  Sender: FDA-Public Use
  Company Number: NL-BRISTOL-MYERS SQUIBB COMPANY-14462915

PATIENT
  Sex: Female

DRUGS (3)
  1. ETOPOSIDE [Suspect]
     Dosage: 25 MG/M2 FOR EACH CYCLE
     Route: 064
  2. DAUNORUBICIN HCL [Suspect]
     Route: 064
  3. ARA-C [Suspect]
     Route: 064

REACTIONS (3)
  - BONE MARROW FAILURE [None]
  - FOETAL GROWTH RETARDATION [None]
  - PYREXIA [None]
